FAERS Safety Report 13614366 (Version 2)
Quarter: 2017Q2

REPORT INFORMATION
  Report Type: Spontaneous
  Country: US (occurrence: US)
  Receive Date: 20170606
  Receipt Date: 20170606
  Transmission Date: 20170830
  Serious: Yes (Other)
  Sender: FDA-Public Use
  Company Number: US-AUROBINDO-AUR-APL-2017-34897

PATIENT
  Age: 6 Month
  Sex: Male

DRUGS (16)
  1. DIAZEPAM. [Suspect]
     Active Substance: DIAZEPAM
     Dosage: 0.15 MG/KG, EVERY SIX HOURS
     Route: 042
  2. FENTANYL. [Suspect]
     Active Substance: FENTANYL
     Dosage: 3 DOSES
     Route: 040
  3. PHENOBARBITAL. [Suspect]
     Active Substance: PHENOBARBITAL
     Indication: AGITATION
     Dosage: 5 MG/KG/DAY
     Route: 042
  4. MIDAZOLAM [Suspect]
     Active Substance: MIDAZOLAM HYDROCHLORIDE
     Dosage: 19 BOLUSES
     Route: 040
  5. FENTANYL. [Suspect]
     Active Substance: FENTANYL
     Indication: AGITATION
     Dosage: 1 ?G/KG/HOUR
     Route: 042
  6. FENTANYL. [Suspect]
     Active Substance: FENTANYL
     Dosage: 19 BOLUSES IN A 24-HOUR PERIOD
     Route: 040
  7. MIDAZOLAM [Suspect]
     Active Substance: MIDAZOLAM HYDROCHLORIDE
     Dosage: 3 ?G/KG/MIN
     Route: 042
  8. DEXMEDETOMIDINE INJECTION [Suspect]
     Active Substance: DEXMEDETOMIDINE
     Indication: AGITATION
     Dosage: 2 ?G/KG/HOUR
     Route: 042
  9. DEXMEDETOMIDINE INJECTION [Suspect]
     Active Substance: DEXMEDETOMIDINE
     Dosage: ONE DOSE
     Route: 040
  10. MORPHINE [Suspect]
     Active Substance: MORPHINE
     Indication: AGITATION
     Dosage: 50 ?G/KG
     Route: 042
  11. DEXMEDETOMIDINE INJECTION [Suspect]
     Active Substance: DEXMEDETOMIDINE
     Dosage: 19 BOLUSES IN A 24-HOUR PERIOD
     Route: 040
  12. METHADONE [Suspect]
     Active Substance: METHADONE HYDROCHLORIDE
     Indication: AGITATION
     Dosage: 0.15 MG/KG,EVERY SIX HOURS
     Route: 042
  13. LORAZEPAM. [Suspect]
     Active Substance: LORAZEPAM
     Indication: AGITATION
     Dosage: 0.1 MG/KG, UNK
     Route: 042
  14. MIDAZOLAM [Suspect]
     Active Substance: MIDAZOLAM HYDROCHLORIDE
     Indication: AGITATION
     Dosage: 1 ?G/KG/MIN
     Route: 042
  15. GABAPENTIN. [Suspect]
     Active Substance: GABAPENTIN
     Indication: AGITATION
     Dosage: 5 MG/KG, EVERY 8 HOURS
     Route: 065
  16. DIAZEPAM. [Suspect]
     Active Substance: DIAZEPAM
     Indication: AGITATION
     Dosage: 0.1 MG/KG, UNK
     Route: 065

REACTIONS (9)
  - Crying [Recovered/Resolved]
  - Restlessness [Recovered/Resolved]
  - Tremor [Recovered/Resolved]
  - Irritability [Recovered/Resolved]
  - Mental status changes [Recovered/Resolved]
  - Dyskinesia [Recovered/Resolved]
  - Head titubation [Recovered/Resolved]
  - Delirium [Recovered/Resolved]
  - Condition aggravated [Recovered/Resolved]
